FAERS Safety Report 5781787-2 (Version None)
Quarter: 2008Q2

REPORT INFORMATION
  Report Type: 
  Country: None (occurrence: None)
  Receive Date: 20080623
  Receipt Date: 20071207
  Transmission Date: 20081010
  Serious: No
  Sender: FDA-Public Use
  Company Number: US-ASTRAZENECA-2007UW28025

PATIENT
  Age: 71 Year
  Sex: Female
  Weight: 46.3 kg

DRUGS (6)
  1. RHINOCORT [Suspect]
     Indication: SINUS CONGESTION
     Route: 045
     Dates: start: 20071207
  2. PROTONIX [Concomitant]
  3. VERAPAMIL [Concomitant]
  4. SIMVASTATIN [Concomitant]
  5. SYNTHROID [Concomitant]
  6. KLONOPIN [Concomitant]

REACTIONS (1)
  - DIZZINESS [None]
